FAERS Safety Report 5382238-2 (Version None)
Quarter: 2007Q3

REPORT INFORMATION
  Report Type: 
  Country: None (occurrence: None)
  Receive Date: 20070709
  Receipt Date: 20070627
  Transmission Date: 20080115
  Serious: Yes (Life-Threatening)
  Sender: FDA-Public Use
  Company Number: FR-PFIZER INC-2007054132

PATIENT
  Age: 84 Year
  Sex: Female

DRUGS (11)
  1. SALAZOPYRINE [Suspect]
     Route: 048
     Dates: start: 20070131, end: 20070430
  2. ATHYMIL [Concomitant]
     Route: 048
  3. CREON [Concomitant]
     Route: 048
  4. AMLODIPINE [Concomitant]
     Route: 048
  5. NISISCO [Concomitant]
     Route: 048
  6. PLAVIX [Concomitant]
     Route: 048
  7. CORTANCYL [Concomitant]
  8. CORDARONE [Concomitant]
  9. ACTONEL [Concomitant]
  10. UMULINE [Concomitant]
  11. LEVOTHYROXINE SODIUM [Concomitant]

REACTIONS (2)
  - AGRANULOCYTOSIS [None]
  - SEPSIS [None]
